FAERS Safety Report 21772268 (Version 1)
Quarter: 2022Q4

REPORT INFORMATION
  Report Type: Spontaneous
  Country: FR (occurrence: None)
  Receive Date: 20221223
  Receipt Date: 20221223
  Transmission Date: 20230113
  Serious: Yes (Hospitalization)
  Sender: FDA-Public Use
  Company Number: 2022A407513

PATIENT
  Sex: Female

DRUGS (3)
  1. OMEPRAZOLE [Suspect]
     Active Substance: OMEPRAZOLE
     Indication: Helicobacter infection
     Route: 048
     Dates: start: 20220707, end: 20220717
  2. PYLERA [Suspect]
     Active Substance: BISMUTH SUBCITRATE POTASSIUM\METRONIDAZOLE\TETRACYCLINE HYDROCHLORIDE
     Indication: Helicobacter infection
     Route: 048
     Dates: start: 20220707, end: 20220717
  3. BUDESONIDE [Concomitant]
     Active Substance: BUDESONIDE
     Indication: Colitis
     Dosage: 3 GEL/D FOR 8 WEEKS, 2 GEL/D FOR 4 WEEKS, 1 GEL/DAY FOR 2 WEEKS
     Route: 048
     Dates: start: 20220707

REACTIONS (1)
  - Mixed liver injury [Recovered/Resolved]

NARRATIVE: CASE EVENT DATE: 20220811
